FAERS Safety Report 9000561 (Version 1)
Quarter: 2013Q1

REPORT INFORMATION
  Report Type: Spontaneous
  Country: US (occurrence: None)
  Receive Date: 20130102
  Receipt Date: 20130102
  Transmission Date: 20140127
  Serious: Yes (Hospitalization)
  Sender: FDA-Public Use
  Company Number: None

PATIENT
  Sex: Female

DRUGS (3)
  1. RIBAPAK [Suspect]
     Route: 048
     Dates: start: 20120907, end: 20121217
  2. PEGASYS [Suspect]
     Route: 058
     Dates: start: 20120907, end: 20121217
  3. INCIVEK [Concomitant]

REACTIONS (5)
  - Rash [None]
  - Fluid overload [None]
  - Anaemia [None]
  - Pyrexia [None]
  - Chills [None]
